FAERS Safety Report 4819505-4 (Version None)
Quarter: 2005Q4

REPORT INFORMATION
  Report Type: 
  Country: None (occurrence: None)
  Receive Date: 20051031
  Receipt Date: 20050606
  Transmission Date: 20060501
  Serious: No
  Sender: FDA-Public Use
  Company Number: 2005PV000016

PATIENT
  Age: 55 Year
  Sex: Female

DRUGS (7)
  1. SYMLIN [Suspect]
     Indication: DIABETES MELLITUS NON-INSULIN-DEPENDENT
     Dosage: 60 UG; SC; SEE IMAGE
     Route: 058
     Dates: start: 20050602, end: 20050605
  2. SYMLIN [Suspect]
     Indication: DIABETES MELLITUS NON-INSULIN-DEPENDENT
     Dosage: 60 UG; SC; SEE IMAGE
     Route: 058
     Dates: start: 20050605
  3. HUMALOG [Concomitant]
  4. SYNTHROID [Concomitant]
  5. POTASSIUM [Concomitant]
  6. INDAPAMIDE [Concomitant]
  7. LIPITOR [Concomitant]

REACTIONS (1)
  - BLOOD GLUCOSE INCREASED [None]
